FAERS Safety Report 4301922-2 (Version None)
Quarter: 2004Q1

REPORT INFORMATION
  Report Type: 
  Country: None (occurrence: None)
  Receive Date: 20040220
  Receipt Date: 20040212
  Transmission Date: 20041129
  Serious: Yes (Other)
  Sender: FDA-Public Use
  Company Number: GB-JNJFOC-20040202791

PATIENT
  Age: 33 Year
  Sex: Female
  Weight: 55 kg

DRUGS (3)
  1. REMICADE [Suspect]
     Indication: VASCULITIS NECROTISING
     Dosage: 5 MG/KG, INTRAVENOUS
     Route: 042
     Dates: start: 20030911
  2. AZATHIOPRINE [Concomitant]
  3. PREDNISOLONE [Concomitant]

REACTIONS (5)
  - DIZZINESS [None]
  - PALLOR [None]
  - TACHYCARDIA [None]
  - TACHYPNOEA [None]
  - VASCULITIS [None]
